FAERS Safety Report 25333794 (Version 1)
Quarter: 2025Q2

REPORT INFORMATION
  Report Type: Report from Study
  Country: CA (occurrence: CA)
  Receive Date: 20250520
  Receipt Date: 20250520
  Transmission Date: 20250716
  Serious: Yes (Other)
  Sender: CELLTRION
  Company Number: CA-CELLTRION INC.-2025CA014683

PATIENT

DRUGS (2)
  1. INFLIXIMAB-DYYB [Suspect]
     Active Substance: INFLIXIMAB-DYYB
     Indication: SAPHO syndrome
     Route: 058
     Dates: start: 20250328
  2. INFLIXIMAB-DYYB [Suspect]
     Active Substance: INFLIXIMAB-DYYB
     Dosage: MAINTENANCE - 120 MG - SC (SUBCUTANEOUS) EVERY 2 WEEKS
     Route: 058
     Dates: end: 202505

REACTIONS (14)
  - Abdominal pain upper [Unknown]
  - Urticaria [Unknown]
  - Skin burning sensation [Unknown]
  - Skin swelling [Unknown]
  - Migraine [Unknown]
  - Impaired quality of life [Unknown]
  - Eye swelling [Unknown]
  - Peripheral swelling [Unknown]
  - Diarrhoea [Unknown]
  - Eczema [Unknown]
  - Hypersensitivity [Unknown]
  - Mouth swelling [Unknown]
  - Joint swelling [Unknown]
  - Intentional product use issue [Unknown]
